FAERS Safety Report 9375651 (Version 3)
Quarter: 2013Q3

REPORT INFORMATION
  Report Type: Spontaneous
  Country: JP (occurrence: JP)
  Receive Date: 20130628
  Receipt Date: 20130708
  Transmission Date: 20140515
  Serious: No
  Sender: FDA-Public Use
  Company Number: JP-PFIZER INC-2013182532

PATIENT
  Age: 77 Year
  Sex: Female

DRUGS (2)
  1. LYRICA [Suspect]
     Dosage: 300 MG, DAILY
     Route: 048
  2. LYRICA [Suspect]
     Dosage: DOSE INCREASED

REACTIONS (3)
  - Visual acuity reduced [Recovered/Resolved]
  - Dizziness [Unknown]
  - Nausea [Unknown]
